FAERS Safety Report 6511737-2 (Version None)
Quarter: 2009Q4

REPORT INFORMATION
  Report Type: 
  Country: None (occurrence: None)
  Receive Date: 20091222
  Receipt Date: 20090401
  Transmission Date: 20100525
  Serious: No
  Sender: FDA-Public Use
  Company Number: US-ASTRAZENECA-2009UW08183

PATIENT
  Age: 44 Year
  Sex: Female
  Weight: 142.9 kg

DRUGS (16)
  1. CRESTOR [Suspect]
     Indication: BLOOD CHOLESTEROL INCREASED
     Route: 048
     Dates: start: 20060101, end: 20081201
  2. CRESTOR [Suspect]
     Indication: BLOOD TRIGLYCERIDES INCREASED
     Route: 048
     Dates: start: 20060101, end: 20081201
  3. CRESTOR [Suspect]
     Indication: LOW DENSITY LIPOPROTEIN INCREASED
     Route: 048
     Dates: start: 20060101, end: 20081201
  4. TRICOR [Suspect]
     Indication: BLOOD CHOLESTEROL INCREASED
     Route: 048
     Dates: start: 20060101, end: 20060101
  5. TRICOR [Suspect]
     Indication: BLOOD TRIGLYCERIDES INCREASED
     Route: 048
     Dates: start: 20060101, end: 20060101
  6. TRICOR [Suspect]
     Indication: LOW DENSITY LIPOPROTEIN INCREASED
     Route: 048
     Dates: start: 20060101, end: 20060101
  7. GABAPENTIN [Concomitant]
     Indication: NEUROPATHY PERIPHERAL
  8. FLUOXETINE [Concomitant]
     Indication: DEPRESSION
  9. TIAGABINE HYDROCHLORIDE [Concomitant]
     Indication: DEPRESSION
  10. CLONAZEPAM [Concomitant]
     Indication: ANXIETY
  11. VICODIN [Concomitant]
     Indication: PAIN
  12. SERETIDE [Concomitant]
     Indication: CHRONIC OBSTRUCTIVE PULMONARY DISEASE
  13. SALBUTOL [Concomitant]
     Indication: CHRONIC OBSTRUCTIVE PULMONARY DISEASE
  14. CARISOPRODOL [Concomitant]
     Indication: PAIN
  15. ERGOCALCIFEROL [Concomitant]
     Indication: HYPOVITAMINOSIS
  16. ACETYLSALICYLIC ACID [Concomitant]
     Indication: CARDIOVASCULAR EVENT PROPHYLAXIS

REACTIONS (2)
  - ARTHRALGIA [None]
  - JOINT SWELLING [None]
